FAERS Safety Report 4823504-6 (Version None)
Quarter: 2005Q4

REPORT INFORMATION
  Report Type: 
  Country: None (occurrence: None)
  Receive Date: 20051107
  Receipt Date: 20051021
  Transmission Date: 20060501
  Serious: Yes (Hospitalization)
  Sender: FDA-Public Use
  Company Number: 27052

PATIENT
  Age: 62 Year
  Sex: Female

DRUGS (5)
  1. FLECAINIDE ACETATE [Suspect]
     Dosage: 200 MG (100 MG, 2 IN 1 DAY(S)), ORAL
     Route: 048
     Dates: start: 20040601, end: 20050201
  2. SINTROM [Concomitant]
  3. TENORMIN [Concomitant]
  4. TRANKIMAZIN [Concomitant]
  5. TERTENSIF RETARD [Concomitant]

REACTIONS (8)
  - ANAEMIA [None]
  - ASTHENIA [None]
  - COLONIC POLYP [None]
  - DEPRESSION [None]
  - EPSTEIN-BARR VIRUS INFECTION [None]
  - INAPPROPRIATE SCHEDULE OF DRUG ADMINISTRATION [None]
  - LARGE INTESTINAL HAEMORRHAGE [None]
  - URINARY TRACT INFECTION [None]
